FAERS Safety Report 8891842 (Version 2)
Quarter: 2012Q4

REPORT INFORMATION
  Report Type: Spontaneous
  Country: US (occurrence: None)
  Receive Date: 20121031
  Receipt Date: 20121107
  Transmission Date: 20130627
  Serious: Yes (Other)
  Sender: FDA-Public Use
  Company Number: AUR-APL-2012-04586

PATIENT
  Age: 71 Year
  Sex: Female
  Weight: 79.36 kg

DRUGS (5)
  1. LAMOTRIGINE [Suspect]
     Dosage: three or four times a day
     Dates: start: 201210, end: 201210
  2. LAMOTRIGINE [Suspect]
     Dates: start: 201210, end: 201210
  3. LYRICA [Suspect]
     Route: 048
     Dates: start: 20121009, end: 20121018
  4. LYRICA [Suspect]
     Route: 048
     Dates: start: 20121019
  5. CARBAMAZEPINE [Concomitant]

REACTIONS (5)
  - Vision blurred [None]
  - Pain [None]
  - Fatigue [None]
  - Discomfort [None]
  - Dizziness [None]
